FAERS Safety Report 7086128-9 (Version None)
Quarter: 2010Q4

REPORT INFORMATION
  Report Type: 
  Country: None (occurrence: None)
  Receive Date: 20101105
  Receipt Date: 20101028
  Transmission Date: 20110411
  Serious: Yes (Hospitalization)
  Sender: FDA-Public Use
  Company Number: B0681701A

PATIENT
  Age: 25 Year
  Sex: Male

DRUGS (2)
  1. IMIJECT [Suspect]
     Indication: CLUSTER HEADACHE
     Route: 058
     Dates: start: 20091201, end: 20101009
  2. AVLOCARDYL [Concomitant]
     Indication: CLUSTER HEADACHE
     Dosage: 40MG THREE TIMES PER DAY
     Route: 048
     Dates: start: 20091201, end: 20101011

REACTIONS (6)
  - BLOOD CHOLESTEROL INCREASED [None]
  - CHEST PAIN [None]
  - CORONARY ARTERY OCCLUSION [None]
  - CORONARY OSTIAL STENOSIS [None]
  - MYOCARDIAL INFARCTION [None]
  - PERICARDITIS [None]
